FAERS Safety Report 10262786 (Version 1)
Quarter: 2014Q2

REPORT INFORMATION
  Report Type: Spontaneous
  Country: US (occurrence: US)
  Receive Date: 20140626
  Receipt Date: 20140626
  Transmission Date: 20141212
  Serious: Yes (Other)
  Sender: FDA-Public Use
  Company Number: US-WATSON-2014-14274

PATIENT
  Age: 68 Year
  Sex: Male

DRUGS (1)
  1. METHYLPREDNISOLONE (WATSON LABORATORIES) [Suspect]
     Indication: TUBULOINTERSTITIAL NEPHRITIS
     Dosage: 32 MG, DAILY
     Route: 048

REACTIONS (1)
  - Diabetes mellitus [Recovered/Resolved]
